FAERS Safety Report 13546863 (Version 2)
Quarter: 2017Q3

REPORT INFORMATION
  Report Type: Spontaneous
  Country: US (occurrence: US)
  Receive Date: 20170515
  Receipt Date: 20170717
  Transmission Date: 20171127
  Serious: Yes (Hospitalization)
  Sender: FDA-Public Use
  Company Number: US-TEVA-767852USA

PATIENT
  Age: 64 Year
  Sex: Female

DRUGS (1)
  1. PROAIR HFA [Suspect]
     Active Substance: ALBUTEROL SULFATE

REACTIONS (4)
  - Wrong technique in product usage process [Unknown]
  - Bronchitis [Unknown]
  - Dyspnoea [Unknown]
  - Medication residue present [Unknown]

NARRATIVE: CASE EVENT DATE: 201705
